FAERS Safety Report 24972306 (Version 2)
Quarter: 2025Q1

REPORT INFORMATION
  Report Type: Report from Study
  Country: CA (occurrence: CA)
  Receive Date: 20250214
  Receipt Date: 20250226
  Transmission Date: 20250409
  Serious: No
  Sender: ABBVIE
  Company Number: CA-ABBVIE-6129840

PATIENT
  Age: 75 Year
  Sex: Female

DRUGS (18)
  1. VENETOCLAX [Suspect]
     Active Substance: VENETOCLAX
     Indication: Acute myeloid leukaemia
     Route: 048
     Dates: start: 20240507, end: 20240526
  2. VENETOCLAX [Suspect]
     Active Substance: VENETOCLAX
     Indication: Acute myeloid leukaemia
     Route: 048
     Dates: start: 20240527, end: 20240609
  3. VENETOCLAX [Suspect]
     Active Substance: VENETOCLAX
     Indication: Acute myeloid leukaemia
     Route: 048
     Dates: start: 20240421, end: 20240421
  4. VENETOCLAX [Suspect]
     Active Substance: VENETOCLAX
     Indication: Acute myeloid leukaemia
     Route: 048
     Dates: start: 20240422, end: 20240422
  5. VENETOCLAX [Suspect]
     Active Substance: VENETOCLAX
     Indication: Acute myeloid leukaemia
     Route: 048
     Dates: start: 20240423, end: 20240506
  6. VENETOCLAX [Suspect]
     Active Substance: VENETOCLAX
     Indication: Acute myeloid leukaemia
     Route: 048
     Dates: start: 20240902, end: 20240908
  7. VENETOCLAX [Suspect]
     Active Substance: VENETOCLAX
     Indication: Acute myeloid leukaemia
     Route: 048
  8. COVID-19 vaccine mRNA [Concomitant]
     Indication: COVID-19 immunisation
     Route: 030
  9. COVID-19 vaccine mRNA [Concomitant]
     Indication: COVID-19 immunisation
     Route: 030
  10. COVID-19 vaccine mRNA [Concomitant]
     Indication: COVID-19 immunisation
     Route: 030
  11. COVID-19 vaccine mRNA [Concomitant]
     Indication: COVID-19 immunisation
     Route: 030
  12. COVID-19 vaccine mRNA [Concomitant]
     Indication: COVID-19 immunisation
     Route: 030
  13. COVID-19 vaccine mRNA [Concomitant]
     Indication: COVID-19 immunisation
     Route: 030
  14. COVID-19 vaccine mRNA [Concomitant]
     Indication: COVID-19 immunisation
     Route: 030
  15. AZACITIDINE [Suspect]
     Active Substance: AZACITIDINE
     Indication: Acute myeloid leukaemia
     Route: 065
     Dates: start: 20240527, end: 20240602
  16. AZACITIDINE [Suspect]
     Active Substance: AZACITIDINE
     Indication: Acute myeloid leukaemia
     Route: 065
     Dates: start: 20240421, end: 20240427
  17. AZACITIDINE [Suspect]
     Active Substance: AZACITIDINE
     Indication: Acute myeloid leukaemia
     Route: 065
     Dates: start: 20240902, end: 20240906
  18. FLUCONAZOLE [Concomitant]
     Active Substance: FLUCONAZOLE
     Indication: Product used for unknown indication

REACTIONS (1)
  - Anaemia [Recovered/Resolved]

NARRATIVE: CASE EVENT DATE: 20240806
